FAERS Safety Report 12696497 (Version 2)
Quarter: 2016Q4

REPORT INFORMATION
  Report Type: Spontaneous
  Country: US (occurrence: US)
  Receive Date: 20160830
  Receipt Date: 20161024
  Transmission Date: 20170207
  Serious: No
  Sender: FDA-Public Use
  Company Number: US-LEO PHARMA-243649

PATIENT
  Age: 65 Year
  Sex: Female
  Weight: 70.3 kg

DRUGS (4)
  1. PICATO [Suspect]
     Active Substance: INGENOL MEBUTATE
     Indication: PRECANCEROUS SKIN LESION
     Dosage: APPLY ONCE DAILY FOR 3 CONSECUTIVE DAYS
     Route: 061
     Dates: start: 20160819
  2. SEROQUEL [Concomitant]
     Active Substance: QUETIAPINE FUMARATE
     Indication: SLEEP DISORDER
  3. WELLBUTRIN [Concomitant]
     Active Substance: BUPROPION HYDROCHLORIDE
     Indication: ANXIETY
  4. WELLBUTRIN [Concomitant]
     Active Substance: BUPROPION HYDROCHLORIDE
     Indication: EUPHORIC MOOD

REACTIONS (4)
  - Application site vesicles [Recovered/Resolved]
  - Application site pain [Recovered/Resolved]
  - Application site erythema [Recovering/Resolving]
  - Application site swelling [Recovered/Resolved with Sequelae]

NARRATIVE: CASE EVENT DATE: 20160819
